FAERS Safety Report 13818308 (Version 1)
Quarter: 2017Q3

REPORT INFORMATION
  Report Type: Spontaneous
  Country: US (occurrence: US)
  Receive Date: 20170731
  Receipt Date: 20170731
  Transmission Date: 20171127
  Serious: No
  Sender: FDA-Public Use
  Company Number: US-ROCHE-566629

PATIENT
  Sex: Female

DRUGS (1)
  1. BONIVA [Suspect]
     Active Substance: IBANDRONATE SODIUM
     Indication: PRODUCT USED FOR UNKNOWN INDICATION
     Dosage: TOOK SINGLE DOSE
     Route: 042
     Dates: start: 20080403, end: 20080403

REACTIONS (8)
  - Musculoskeletal stiffness [Unknown]
  - Muscle strain [Unknown]
  - Joint stiffness [Unknown]
  - Joint stiffness [Not Recovered/Not Resolved]
  - Neoplasm skin [Unknown]
  - Pain in extremity [Unknown]
  - Arthralgia [Not Recovered/Not Resolved]
  - Back pain [Not Recovered/Not Resolved]

NARRATIVE: CASE EVENT DATE: 200812
